FAERS Safety Report 15275677 (Version 1)
Quarter: 2018Q3

REPORT INFORMATION
  Report Type: Spontaneous
  Country: US (occurrence: US)
  Receive Date: 20180814
  Receipt Date: 20180814
  Transmission Date: 20181010
  Serious: No
  Sender: FDA-Public Use
  Company Number: US-CELLTRION INC.-2018US020791

PATIENT

DRUGS (2)
  1. INFLECTRA [Suspect]
     Active Substance: INFLIXIMAB-DYYB
     Indication: CROHN^S DISEASE
     Dosage: GREATER THAN 8 WEEKS
     Route: 065
     Dates: start: 20180402, end: 20180402
  2. INFLECTRA [Suspect]
     Active Substance: INFLIXIMAB-DYYB
     Dosage: GREATER THAN 8 WEEKS
     Route: 065
     Dates: start: 20180529, end: 20180529

REACTIONS (1)
  - Inappropriate schedule of drug administration [Unknown]
